FAERS Safety Report 8078440-1 (Version None)
Quarter: 2012Q1

REPORT INFORMATION
  Report Type: 
  Country: None (occurrence: None)
  Receive Date: 20120127
  Receipt Date: 20110103
  Transmission Date: 20120608
  Serious: No
  Sender: FDA-Public Use
  Company Number: US-ABBOTT-10P-163-0646559-00

PATIENT
  Sex: Female
  Weight: 54.48 kg

DRUGS (7)
  1. LISINOPRIL [Concomitant]
     Indication: HYPERTENSION
  2. PREDNISONE [Concomitant]
     Indication: RHEUMATOID ARTHRITIS
     Dosage: CURRENTLY TAKING 5MG QD, BUT ON OCCASION INCREASES PRN
     Route: 048
  3. HUMIRA [Suspect]
     Indication: ARTHRITIS
     Route: 058
     Dates: start: 20090601, end: 20100929
  4. HUMIRA [Suspect]
     Route: 058
  5. HUMIRA [Suspect]
  6. CIPROFLOXACIN [Concomitant]
     Indication: EYE DISCHARGE
  7. CIPROFLOXACIN [Concomitant]
     Indication: SPUTUM DISCOLOURED
     Route: 048
     Dates: start: 20100524

REACTIONS (7)
  - EYE DISCHARGE [None]
  - SPUTUM DISCOLOURED [None]
  - NASOPHARYNGITIS [None]
  - HYPERSENSITIVITY [None]
  - MADAROSIS [None]
  - DRUG EFFECT DECREASED [None]
  - LYMPHADENOPATHY [None]
